FAERS Safety Report 21797669 (Version 1)
Quarter: 2022Q4

REPORT INFORMATION
  Report Type: Spontaneous
  Country: US (occurrence: US)
  Receive Date: 20221230
  Receipt Date: 20221230
  Transmission Date: 20230113
  Serious: No
  Sender: FDA-Public Use
  Company Number: US-drreddys-SPO/USA/22/0158523

PATIENT
  Age: 53 Year
  Sex: Female

DRUGS (5)
  1. LENALIDOMIDE [Suspect]
     Active Substance: LENALIDOMIDE
     Indication: Plasma cell myeloma
     Dosage: 1 CAPSULE BY MOUTH ONCE DAILY ON DAYS 1-21 THEN OFF FOR 7 DAYS EVERY 28 DAY CYCLE
     Route: 048
     Dates: start: 20221116
  2. AMLODIPINE B [Concomitant]
     Indication: Product used for unknown indication
  3. CLONIDINE HC [Concomitant]
     Indication: Product used for unknown indication
  4. GABAPENTIN [Concomitant]
     Active Substance: GABAPENTIN
     Indication: Product used for unknown indication
  5. LOSARTAN POTASSIUM [Concomitant]
     Active Substance: LOSARTAN POTASSIUM
     Indication: Product used for unknown indication

REACTIONS (2)
  - Product dose omission issue [Unknown]
  - Product administration interrupted [Unknown]
